FAERS Safety Report 17849997 (Version 1)
Quarter: 2020Q2

REPORT INFORMATION
  Report Type: Spontaneous
  Country: GB (occurrence: GB)
  Receive Date: 20200602
  Receipt Date: 20200602
  Transmission Date: 20200714
  Serious: Yes (Life-Threatening, Other)
  Sender: FDA-Public Use
  Company Number: GB-TEVA-2020-GB-1242639

PATIENT
  Sex: Female

DRUGS (21)
  1. LANSOPRAZOLE. [Concomitant]
     Active Substance: LANSOPRAZOLE
  2. CO-AMOXICLAV [Concomitant]
     Active Substance: AMOXICILLIN\CLAVULANATE POTASSIUM
  3. CLONAZEPAM. [Concomitant]
     Active Substance: CLONAZEPAM
  4. MIDODRINE [Concomitant]
     Active Substance: MIDODRINE
  5. LANTHANUM CARBONATE HYDRATE [Concomitant]
  6. CLOPIDOGREL BESILATE [Concomitant]
     Active Substance: CLOPIDOGREL BESILATE
  7. ZOPICLONE [Concomitant]
     Active Substance: ZOPICLONE
  8. AMIODARONE [Concomitant]
     Active Substance: AMIODARONE
  9. FOLIC ACID. [Concomitant]
     Active Substance: FOLIC ACID
  10. INSULIN [Concomitant]
     Active Substance: INSULIN NOS
     Indication: TYPE 2 DIABETES MELLITUS
     Dates: start: 1996
  11. MEBEVERINE HYDROCHLORIDE [Concomitant]
     Active Substance: MEBEVERINE HYDROCHLORIDE
  12. THYROXINE [Concomitant]
     Active Substance: LEVOTHYROXINE
  13. NEORECORMON [Concomitant]
     Active Substance: ERYTHROPOIETIN
  14. GABAPENTIN. [Concomitant]
     Active Substance: GABAPENTIN
  15. WARFARIN [Suspect]
     Active Substance: WARFARIN
     Indication: EMBOLISM VENOUS
     Route: 048
     Dates: start: 201905
  16. LETROZOLE. [Concomitant]
     Active Substance: LETROZOLE
  17. ATORVASTATIN [Concomitant]
     Active Substance: ATORVASTATIN
  18. OMACOR [Concomitant]
     Active Substance: OMEGA-3-ACID ETHYL ESTERS
  19. DIGOXIN. [Concomitant]
     Active Substance: DIGOXIN
  20. CARVEDILOL. [Concomitant]
     Active Substance: CARVEDILOL
  21. CITALOPRAM [Concomitant]
     Active Substance: CITALOPRAM HYDROBROMIDE

REACTIONS (1)
  - International normalised ratio increased [Recovered/Resolved]
